FAERS Safety Report 17159360 (Version 3)
Quarter: 2020Q1

REPORT INFORMATION
  Report Type: Spontaneous
  Country: AU (occurrence: AU)
  Receive Date: 20191216
  Receipt Date: 20200123
  Transmission Date: 20200409
  Serious: Yes (Other)
  Sender: FDA-Public Use
  Company Number: AU-GLAXOSMITHKLINE-AU2019APC223275

PATIENT

DRUGS (2)
  1. ASMOL (SALBUTAMOL SULFATE) [Suspect]
     Active Substance: ALBUTEROL SULFATE
     Dosage: UNK
  2. ASMOL (SALBUTAMOL SULFATE) [Suspect]
     Active Substance: ALBUTEROL SULFATE
     Indication: ASTHMA
     Dosage: 4 PUFF(S)

REACTIONS (6)
  - Device issue [Unknown]
  - Expired device used [Unknown]
  - Product dose omission [Unknown]
  - Product label issue [Unknown]
  - Device ineffective [Unknown]
  - Product complaint [Unknown]
